FAERS Safety Report 5974511-1 (Version None)
Quarter: 2008Q4

REPORT INFORMATION
  Report Type: 
  Country: None (occurrence: None)
  Receive Date: 20081201
  Receipt Date: 20080129
  Transmission Date: 20090506
  Serious: No
  Sender: FDA-Public Use
  Company Number: US-AMGEN-KDL262928

PATIENT
  Sex: Female

DRUGS (3)
  1. ENBREL [Suspect]
     Indication: PSORIATIC ARTHROPATHY
     Route: 058
     Dates: start: 20021126
  2. ENBREL [Suspect]
     Indication: PSORIASIS
  3. UNSPECIFIED ANTIHYPERTENSIVE AGENT [Concomitant]

REACTIONS (4)
  - ABDOMINAL DISTENSION [None]
  - ABDOMINAL PAIN [None]
  - ALOPECIA [None]
  - EPISTAXIS [None]
